FAERS Safety Report 8588398-4 (Version None)
Quarter: 2012Q3

REPORT INFORMATION
  Report Type: 
  Country: None (occurrence: None)
  Receive Date: 20120813
  Receipt Date: 20120802
  Transmission Date: 20120928
  Serious: Yes (Hospitalization, Other)
  Sender: FDA-Public Use
  Company Number: BR-SANOFI-AVENTIS-2012SA055690

PATIENT
  Age: 77 Year
  Sex: Female
  Weight: 62 kg

DRUGS (7)
  1. LANTUS SOLOSTAR [Suspect]
     Dosage: 40 IU IN THE MORNING,10 IU AT NIGHT
     Route: 058
     Dates: start: 20100101
  2. SOLOSTAR [Suspect]
     Indication: DEVICE THERAPY
     Dates: start: 20100101
  3. SIMVASTATIN [Concomitant]
     Dosage: IN THE MORNING
     Route: 048
     Dates: start: 20120201
  4. CARVEDILOL [Concomitant]
     Dosage: IN THE MORNING
     Route: 048
     Dates: start: 20120201
  5. METFORMIN HYDROCHLORIDE [Concomitant]
     Dosage: HALF IN THE MORNING AND HALF IN THE NIGHT
     Route: 048
     Dates: start: 20120501
  6. OS-CAL D [Concomitant]
     Indication: BONE DISORDER
     Route: 048
     Dates: start: 20020101
  7. AMARYL [Concomitant]
     Dosage: HALF IN THE MORNING AND HALF IN THE NIGHT
     Route: 048
     Dates: start: 20090101

REACTIONS (10)
  - GINGIVAL PAIN [None]
  - HERPES ZOSTER [None]
  - DIARRHOEA [None]
  - HYPERGLYCAEMIA [None]
  - HEADACHE [None]
  - VISUAL IMPAIRMENT [None]
  - HEARING IMPAIRED [None]
  - URINARY TRACT INFECTION [None]
  - WOUND [None]
  - FEELING ABNORMAL [None]
